FAERS Safety Report 5739176-2 (Version None)
Quarter: 2008Q2

REPORT INFORMATION
  Report Type: 
  Country: None (occurrence: None)
  Receive Date: 20080515
  Receipt Date: 20080506
  Transmission Date: 20081010
  Serious: Yes (Other)
  Sender: FDA-Public Use
  Company Number: D0056521A

PATIENT
  Age: 22 Year
  Sex: Male
  Weight: 87 kg

DRUGS (2)
  1. LAMICTAL [Suspect]
     Indication: EPILEPSY
     Dosage: 25MG PER DAY
     Route: 048
  2. KEPPRA [Concomitant]
     Indication: EPILEPSY
     Dosage: 1500MG TWICE PER DAY
     Route: 048
     Dates: start: 20071101

REACTIONS (5)
  - IRRITABILITY [None]
  - NAUSEA [None]
  - PSYCHOTIC DISORDER [None]
  - RESTLESSNESS [None]
  - VOMITING [None]
